FAERS Safety Report 8611861-4 (Version None)
Quarter: 2012Q3

REPORT INFORMATION
  Report Type: 
  Country: None (occurrence: None)
  Receive Date: 20120822
  Receipt Date: 20120810
  Transmission Date: 20120928
  Serious: Yes (Other)
  Sender: FDA-Public Use
  Company Number: AU-BRISTOL-MYERS SQUIBB COMPANY-16855736

PATIENT
  Age: 36 Year
  Sex: Female
  Weight: 91 kg

DRUGS (8)
  1. ACETAMINOPHEN W/ CODEINE [Concomitant]
     Route: 048
  2. VENTOLIN [Concomitant]
     Dosage: VENTOLIN PUFFER.
  3. FLUTICASONE PROPIONATE/SALMETEROL [Concomitant]
     Dosage: SERETIDE PUFFER
  4. RABEPRAZOLE SODIUM [Concomitant]
     Dosage: 1DF=1 UNIT NOS
     Route: 048
  5. ORENCIA [Suspect]
     Indication: RHEUMATOID ARTHRITIS
     Dosage: CUMULATIVE DOSE:750 CYC:26
     Route: 042
     Dates: start: 20110101
  6. FOLIC ACID [Concomitant]
     Dosage: 1DF=1 TAB 12HRS LATER
     Route: 048
  7. PROCHLORPERAZINE [Concomitant]
     Route: 048
  8. METHOTREXATE [Concomitant]
     Route: 048

REACTIONS (4)
  - OCULAR HYPERAEMIA [None]
  - DRY EYE [None]
  - EYE SWELLING [None]
  - VERTIGO POSITIONAL [None]
